FAERS Safety Report 5147596-2 (Version None)
Quarter: 2006Q4

REPORT INFORMATION
  Report Type: 
  Country: None (occurrence: None)
  Receive Date: 20061103
  Receipt Date: 20061024
  Transmission Date: 20070319
  Serious: Yes (Hospitalization)
  Sender: FDA-Public Use
  Company Number: HQWYE548125OCT06

PATIENT
  Sex: Female
  Weight: 59.02 kg

DRUGS (4)
  1. PREMARIN [Suspect]
     Indication: ENDOMETRIOSIS
     Dosage: 1 TABLET 1X PER 1 DAY, ORAL
     Route: 048
     Dates: start: 20030101
  2. MORPHINE [Concomitant]
  3. CLONAPIN (CLONAZEPAM) [Concomitant]
  4. LYRICA [Concomitant]

REACTIONS (2)
  - DRUG WITHDRAWAL SYNDROME [None]
  - VOMITING [None]
